FAERS Safety Report 14658900 (Version 2)
Quarter: 2020Q3

REPORT INFORMATION
  Report Type: Report from Study
  Country: US (occurrence: US)
  Receive Date: 20180320
  Receipt Date: 20180409
  Transmission Date: 20201104
  Serious: Yes (Hospitalization)
  Sender: FDA-Public Use
  Company Number: US-ROCHE-2087960

PATIENT
  Age: 50 Year
  Sex: Female
  Weight: 74.7 kg

DRUGS (3)
  1. OBINUTUZUMAB. [Suspect]
     Active Substance: OBINUTUZUMAB
     Indication: DIFFUSE LARGE B-CELL LYMPHOMA
     Dosage: DOSE AS PER PROTOCOL: OBINUTUZUMAB WILL BE ADMINISTERED BY IV INFUSION AT A FLAT DOSE OF 1000 MG ON
     Route: 042
     Dates: start: 20180122
  2. ATEZOLIZUMAB. [Suspect]
     Active Substance: ATEZOLIZUMAB
     Indication: DIFFUSE LARGE B-CELL LYMPHOMA
     Dosage: DOSE AS PER PROTOCOL: ATEZOLIZUMAB WILL BE ADMINISTERED BY (IV) INFUSION AT A FLAT DOSE OF 1200 MG E
     Route: 042
     Dates: start: 20180212
  3. POLATUZUMAB VEDOTIN. [Suspect]
     Active Substance: POLATUZUMAB VEDOTIN
     Indication: DIFFUSE LARGE B-CELL LYMPHOMA
     Dosage: DOSE AS PER PROTOCOL: POLATUZUMAB VEDOTIN WILL BE ADMINISTERED BY IV INFUSION. FOR RELAPSED OR REFRA
     Route: 042
     Dates: start: 20180122

REACTIONS (1)
  - Febrile neutropenia [Recovered/Resolved]

NARRATIVE: CASE EVENT DATE: 20180306
